FAERS Safety Report 7457439-X (Version None)
Quarter: 2011Q2

REPORT INFORMATION
  Report Type: 
  Country: None (occurrence: None)
  Receive Date: 20110504
  Receipt Date: 20110422
  Transmission Date: 20111010
  Serious: Yes (Other)
  Sender: FDA-Public Use
  Company Number: PHHY2011JP04322

PATIENT
  Sex: Male
  Weight: 52 kg

DRUGS (41)
  1. EXJADE [Suspect]
     Dosage: 500 MG
     Route: 048
     Dates: start: 20100609, end: 20101201
  2. GASPORT D [Concomitant]
     Dosage: 10 MG, UNK
     Route: 048
     Dates: start: 20100609
  3. HUSTAZOL [Concomitant]
     Dosage: 30 MG, UNK
     Route: 048
     Dates: start: 20100611, end: 20100617
  4. PLATELETS [Concomitant]
     Dates: start: 20100817, end: 20101207
  5. ZANTAC [Concomitant]
     Dosage: 150 MG, UNK
     Route: 048
     Dates: start: 20091013, end: 20100306
  6. VALTREX [Concomitant]
     Dosage: 1000 MG, UNK
     Route: 048
  7. PROGRAF [Concomitant]
     Dosage: 1 MG, UNK
     Route: 048
  8. GRAN [Concomitant]
     Dosage: 75 UG, UNK
  9. RED CELLS MAP [Concomitant]
     Dates: start: 20100913, end: 20101125
  10. EBUTOL [Concomitant]
     Dosage: 750 MG, UNK
     Route: 048
     Dates: start: 20091013, end: 20100306
  11. BAKTAR [Concomitant]
     Dosage: 1 DF, UNK
     Route: 048
     Dates: start: 20100609
  12. EXJADE [Suspect]
     Dosage: 1000 MG
     Route: 048
     Dates: start: 20100126, end: 20100306
  13. VFEND [Concomitant]
     Dosage: 200 MG, UNK
     Route: 048
     Dates: start: 20100609, end: 20100622
  14. BAKTAR [Concomitant]
     Dosage: 1 DF, UNK
     Route: 048
  15. PROGRAF [Concomitant]
     Dosage: 0.5 MG, UNK
     Route: 048
  16. RED CELLS MAP [Concomitant]
     Dosage: 2 U, 2-4 TIMES A MONTH
     Dates: start: 20100107, end: 20100305
  17. PLATELETS [Concomitant]
     Dosage: 10 U, 2-8 TIMES A MONTH
     Dates: start: 20100108, end: 20100306
  18. EXJADE [Suspect]
     Indication: MYELODYSPLASTIC SYNDROME
     Dosage: 500 MG
     Route: 048
     Dates: start: 20100107, end: 20100125
  19. URSO 250 [Concomitant]
     Dosage: 600 MG, UNK
     Route: 048
  20. PROGRAF [Concomitant]
     Dosage: 1 MG, UNK
     Route: 048
  21. MYCOBUTIN [Concomitant]
     Dosage: 300 MG, UNK
     Route: 048
     Dates: start: 20091013, end: 20100306
  22. URSO 250 [Concomitant]
     Indication: PROPHYLAXIS
     Dosage: 300 MG, UNK
     Route: 048
     Dates: start: 20100609
  23. PROGRAF [Concomitant]
     Dosage: 0.8 MG, UNK
     Route: 048
     Dates: start: 20100609
  24. PROGRAF [Concomitant]
     Dosage: 1 MG, UNK
     Route: 048
  25. PROGRAF [Concomitant]
     Dosage: 1 MG, UNK
     Route: 048
  26. PROGRAF [Concomitant]
     Dosage: 0.4 MG, UNK
     Route: 048
  27. GRAN [Concomitant]
     Dosage: 75 UG, UNK
     Dates: end: 20101208
  28. EXJADE [Suspect]
     Dosage: 1000 MG
     Route: 048
     Dates: start: 20101202, end: 20101206
  29. KLARICID [Concomitant]
     Dosage: 400 MG, UNK
     Route: 048
  30. GASPORT D [Concomitant]
     Dosage: 10 MG, UNK
     Route: 048
  31. BAKTAR [Concomitant]
     Dosage: 1 DF, UNK
     Route: 048
  32. PROGRAF [Concomitant]
     Dosage: 1 MG, UNK
     Route: 048
  33. SAXIZON [Concomitant]
     Dosage: 100 MG, UNK
     Dates: start: 20100817, end: 20101207
  34. IMMUNOSUPPRESSANTS [Concomitant]
  35. KLARICID [Concomitant]
     Dosage: 800 MG, UNK
     Route: 048
     Dates: start: 20091013
  36. KLARICID [Concomitant]
     Dosage: 400 MG, UNK
     Route: 048
  37. VALTREX [Concomitant]
     Dosage: 1000 MG, UNK
     Route: 048
     Dates: start: 20091027
  38. VALTREX [Concomitant]
     Dosage: 1000 MG, UNK
     Route: 048
  39. DIFLUCAN [Concomitant]
     Dosage: 200 MG, UNK
     Route: 048
     Dates: start: 20091119, end: 20100306
  40. PROGRAF [Concomitant]
     Dosage: 0.9 MG, UNK
     Route: 048
  41. GRAN [Concomitant]
     Dosage: 75 UG, UNK
     Dates: start: 20101130

REACTIONS (5)
  - ACUTE GRAFT VERSUS HOST DISEASE IN LIVER [None]
  - HEPATIC FUNCTION ABNORMAL [None]
  - GAMMA-GLUTAMYLTRANSFERASE INCREASED [None]
  - BLOOD ALKALINE PHOSPHATASE INCREASED [None]
  - ALANINE AMINOTRANSFERASE INCREASED [None]
